FAERS Safety Report 5339836-1 (Version None)
Quarter: 2007Q2

REPORT INFORMATION
  Report Type: 
  Country: None (occurrence: None)
  Receive Date: 20070405
  Receipt Date: 20061102
  Transmission Date: 20071010
  Serious: No
  Sender: FDA-Public Use
  Company Number: US200611000667

PATIENT
  Age: 21 Year
  Sex: Female

DRUGS (2)
  1. CYMBALTA [Suspect]
     Indication: DIABETIC NEUROPATHY
     Dosage: 30 MG, DAILY (1/D), ORAL, 60 MG, DAILY (1/D)
     Route: 048
     Dates: start: 20060101, end: 20060101
  2. CYMBALTA [Suspect]
     Indication: DIABETIC NEUROPATHY
     Dosage: 30 MG, DAILY (1/D), ORAL, 60 MG, DAILY (1/D)
     Route: 048
     Dates: start: 20060101, end: 20060101

REACTIONS (3)
  - DIZZINESS [None]
  - EMERGENCY CARE EXAMINATION [None]
  - VERTIGO [None]
